FAERS Safety Report 25211976 (Version 1)
Quarter: 2025Q2

REPORT INFORMATION
  Report Type: Spontaneous
  Country: AT (occurrence: AT)
  Receive Date: 20250418
  Receipt Date: 20250418
  Transmission Date: 20250716
  Serious: Yes (Other)
  Sender: SANDOZ
  Company Number: AT-TEVA-VS-3304034

PATIENT
  Age: 75 Year
  Sex: Male

DRUGS (3)
  1. CIPROFLOXACIN [Suspect]
     Active Substance: CIPROFLOXACIN
     Indication: Gastrointestinal inflammation
     Route: 065
     Dates: start: 202002, end: 202002
  2. CLOPIDOGREL [Concomitant]
     Active Substance: CLOPIDOGREL BISULFATE
     Indication: Product used for unknown indication
     Route: 065
  3. RAMIPRIL [Concomitant]
     Active Substance: RAMIPRIL
     Indication: Product used for unknown indication
     Route: 065

REACTIONS (15)
  - Cardiac failure [Unknown]
  - Paraparesis [Unknown]
  - Polyneuropathy [Not Recovered/Not Resolved]
  - Malaise [Unknown]
  - Bronchitis chronic [Unknown]
  - Muscle atrophy [Not Recovered/Not Resolved]
  - General physical health deterioration [Unknown]
  - Gait inability [Unknown]
  - Tendon disorder [Not Recovered/Not Resolved]
  - Adverse event [Recovering/Resolving]
  - Muscular weakness [Unknown]
  - Asthenia [Unknown]
  - Tendon pain [Unknown]
  - Tendon rupture [Unknown]
  - Dizziness [Unknown]

NARRATIVE: CASE EVENT DATE: 20200101
